FAERS Safety Report 6508235-9 (Version None)
Quarter: 2009Q4

REPORT INFORMATION
  Report Type: 
  Country: None (occurrence: None)
  Receive Date: 20091221
  Receipt Date: 20081218
  Transmission Date: 20100525
  Serious: No
  Sender: FDA-Public Use
  Company Number: US-ASTRAZENECA-2008UW28394

PATIENT
  Age: 73 Year
  Sex: Male

DRUGS (2)
  1. CRESTOR [Suspect]
     Dosage: UNKNOWN
     Route: 048
     Dates: start: 20081127
  2. COREG [Concomitant]

REACTIONS (1)
  - ILL-DEFINED DISORDER [None]
